FAERS Safety Report 19977900 (Version 1)
Quarter: 2021Q4

REPORT INFORMATION
  Report Type: Spontaneous
  Country: US (occurrence: US)
  Receive Date: 20211019
  Receipt Date: 20211019
  Transmission Date: 20220303
  Serious: Yes (Hospitalization)
  Sender: FDA-Public Use
  Company Number: None

PATIENT
  Age: 60 Year
  Sex: Male
  Weight: 127.01 kg

DRUGS (2)
  1. LISINOPRIL [Suspect]
     Active Substance: LISINOPRIL
     Indication: Hypertension
     Route: 048
     Dates: start: 20201205, end: 20210714
  2. LISINOPRIL [Suspect]
     Active Substance: LISINOPRIL
     Route: 048
     Dates: start: 20200817, end: 20201207

REACTIONS (1)
  - Angioedema [None]

NARRATIVE: CASE EVENT DATE: 20210714
